FAERS Safety Report 9350987 (Version 3)
Quarter: 2013Q3

REPORT INFORMATION
  Report Type: Spontaneous
  Country: US (occurrence: US)
  Receive Date: 20130617
  Receipt Date: 20130927
  Transmission Date: 20140515
  Serious: Yes (Hospitalization, Other)
  Sender: FDA-Public Use
  Company Number: US-009507513-1306USA007116

PATIENT
  Age: 48 Year
  Sex: Female

DRUGS (3)
  1. PEGINTRON [Suspect]
     Indication: HEPATITIS C
     Dosage: REDIPEN
     Dates: start: 20130524, end: 20130629
  2. REBETOL [Suspect]
     Indication: HEPATITIS C
     Dosage: UNK
     Route: 048
     Dates: start: 20130524, end: 20130629
  3. TELAPREVIR [Suspect]
     Indication: HEPATITIS C
     Dosage: UNK
     Dates: start: 20130524, end: 20130629

REACTIONS (13)
  - Pancytopenia [Unknown]
  - Contusion [Unknown]
  - Vomiting [Unknown]
  - Thrombocytopenia [Unknown]
  - Nausea [Unknown]
  - Malaise [Unknown]
  - White blood cell count abnormal [Unknown]
  - Hypotension [Unknown]
  - Sluggishness [Unknown]
  - Feeling hot [Unknown]
  - Chest pain [Unknown]
  - Substance use [Unknown]
  - Viral test positive [Unknown]
